FAERS Safety Report 12287766 (Version 2)
Quarter: 2016Q2

REPORT INFORMATION
  Report Type: Spontaneous
  Country: JP (occurrence: JP)
  Receive Date: 20160420
  Receipt Date: 20160524
  Transmission Date: 20160815
  Serious: Yes (Death, Other)
  Sender: FDA-Public Use
  Company Number: JP-ELI_LILLY_AND_COMPANY-JP201512001110

PATIENT
  Age: 93 Year
  Sex: Female
  Weight: 30 kg

DRUGS (15)
  1. WARFARIN [Concomitant]
     Active Substance: WARFARIN
     Indication: PRODUCT USED FOR UNKNOWN INDICATION
     Dosage: UNK
     Route: 065
     Dates: start: 20151015
  2. DIART [Concomitant]
     Active Substance: AZOSEMIDE
     Indication: HYPERTENSION
     Dosage: 15 MG, QD
     Route: 048
     Dates: end: 20151015
  3. BAYASPIRIN [Suspect]
     Active Substance: ASPIRIN
     Indication: ACUTE MYOCARDIAL INFARCTION
     Dosage: 200 MG, QD
     Route: 048
     Dates: start: 20151015, end: 20151015
  4. FAMOTIDINE. [Concomitant]
     Active Substance: FAMOTIDINE
     Indication: GASTRITIS
     Dosage: 10 MG, QD
     Route: 048
     Dates: end: 20151015
  5. LOSARTAN                           /01121602/ [Concomitant]
     Active Substance: LOSARTAN
     Indication: HYPERTENSION
     Dosage: 50 MG, QD
     Route: 048
     Dates: end: 20151015
  6. LANIRAPID [Concomitant]
     Active Substance: METILDIGOXIN
     Indication: ATRIAL FIBRILLATION
     Dosage: .05 MG, QD
     Route: 048
     Dates: end: 20151015
  7. PRASUGREL HYDROCHLORIDE [Suspect]
     Active Substance: PRASUGREL HYDROCHLORIDE
     Indication: ACUTE MYOCARDIAL INFARCTION
     Dosage: 20 MG, QD
     Route: 048
     Dates: start: 20151015, end: 20151015
  8. BAYASPIRIN [Suspect]
     Active Substance: ASPIRIN
     Dosage: 100 MG, QD
     Route: 065
     Dates: start: 20151016, end: 20151118
  9. ADALAT [Concomitant]
     Active Substance: NIFEDIPINE
     Indication: HYPERTENSION
     Dosage: 20 MG, QD
     Route: 048
     Dates: end: 20151015
  10. HEPARIN [Concomitant]
     Active Substance: HEPARIN SODIUM
     Indication: PRODUCT USED FOR UNKNOWN INDICATION
     Dosage: UNK
     Route: 065
     Dates: start: 20151015
  11. BUFFERIN A                         /00009201/ [Concomitant]
     Active Substance: ASPIRIN\DIHYDROXYALUMINUM AMINOACETATE ANHYDROUS\MAGNESIUM CARBONATE
     Indication: ANGINA PECTORIS
     Dosage: 81 MG, QD
     Route: 048
     Dates: end: 20151015
  12. XYLOCAINE                          /00033402/ [Concomitant]
     Indication: ACUTE MYOCARDIAL INFARCTION
     Dosage: 7 MG, QD
     Route: 058
     Dates: end: 20151015
  13. LASIX [Concomitant]
     Active Substance: FUROSEMIDE
     Indication: HYPERTENSION
     Dosage: 20 MG, QD
     Route: 048
     Dates: end: 20151015
  14. PRASUGREL HYDROCHLORIDE [Suspect]
     Active Substance: PRASUGREL HYDROCHLORIDE
     Dosage: 3.75 MG, QD
     Route: 065
     Dates: start: 20151016, end: 20151118
  15. DEPAS [Concomitant]
     Active Substance: ETIZOLAM
     Indication: INSOMNIA
     Dosage: .5 MG, QD
     Route: 048
     Dates: end: 20151015

REACTIONS (3)
  - Acute kidney injury [Fatal]
  - Haemorrhage subcutaneous [Recovering/Resolving]
  - Anaemia [Recovered/Resolved]

NARRATIVE: CASE EVENT DATE: 20151015
